FAERS Safety Report 8263788-8 (Version None)
Quarter: 2012Q2

REPORT INFORMATION
  Report Type: 
  Country: None (occurrence: None)
  Receive Date: 20120405
  Receipt Date: 20120403
  Transmission Date: 20120825
  Serious: Yes (Other)
  Sender: FDA-Public Use
  Company Number: US-PFIZER INC-2012084570

PATIENT
  Sex: Female

DRUGS (2)
  1. NEURONTIN [Suspect]
     Indication: CEREBROVASCULAR ACCIDENT
     Dosage: 600 MG, 3X/DAY
     Route: 048
     Dates: start: 20040101
  2. FOSAMAX [Suspect]
     Indication: BONE DISORDER
     Dosage: UNK

REACTIONS (3)
  - DRUG INEFFECTIVE [None]
  - SKIN DISORDER [None]
  - IMMUNE SYSTEM DISORDER [None]
